FAERS Safety Report 23237617 (Version 2)
Quarter: 2023Q4

REPORT INFORMATION
  Report Type: Report from Study
  Country: US (occurrence: US)
  Receive Date: 20231128
  Receipt Date: 20231206
  Transmission Date: 20240109
  Serious: Yes (Hospitalization, Other)
  Sender: FDA-Public Use
  Company Number: US-JNJFOC-20231150732

PATIENT
  Age: 83 Year
  Sex: Female
  Weight: 49.8 kg

DRUGS (24)
  1. AMIVANTAMAB [Suspect]
     Active Substance: AMIVANTAMAB
     Indication: Non-small cell lung cancer
     Dosage: MOST RECENT DOSE ON 07-NOV-2023; 25 R VIAL
     Route: 058
     Dates: start: 20230816
  2. PEMETREXED [Concomitant]
     Active Substance: PEMETREXED
     Indication: Non-small cell lung cancer
     Dosage: MOST RECENT DOSE ON 07-NOV-2023
     Route: 042
     Dates: start: 20230816
  3. CARBOPLATIN [Concomitant]
     Active Substance: CARBOPLATIN
     Indication: Non-small cell lung cancer
     Dosage: MOST RECENT DOSE ON 17-OCT-2023; 60 ML VIAL
     Route: 042
     Dates: start: 20230816
  4. BIOTIN [Concomitant]
     Active Substance: BIOTIN
     Indication: Prophylaxis
     Route: 048
     Dates: start: 20180601
  5. MINERALS\VITAMINS [Concomitant]
     Active Substance: MINERALS\VITAMINS
     Indication: Supplementation therapy
     Route: 048
     Dates: start: 20180601
  6. ZOLEDRONIC ACID [Concomitant]
     Active Substance: ZOLEDRONIC ACID
     Indication: Osteoporosis
     Route: 042
     Dates: start: 20180601
  7. VITAMIN D3 [Concomitant]
     Active Substance: CHOLECALCIFEROL
     Indication: Nutritional supplementation
     Route: 048
     Dates: start: 20180701
  8. PREMARIN [Concomitant]
     Active Substance: ESTROGENS, CONJUGATED
     Indication: Prophylaxis urinary tract infection
     Route: 061
     Dates: start: 20220601
  9. CARVEDILOL [Concomitant]
     Active Substance: CARVEDILOL
     Indication: Ventricular arrhythmia
     Route: 048
     Dates: start: 20230301
  10. TYLENOL [Concomitant]
     Active Substance: ACETAMINOPHEN
     Indication: Insomnia
     Route: 048
     Dates: start: 20230301
  11. FOSFOMYCIN [Concomitant]
     Active Substance: FOSFOMYCIN
     Indication: Prophylaxis urinary tract infection
     Route: 048
     Dates: start: 20230821
  12. CLINDAMYCIN [Concomitant]
     Active Substance: CLINDAMYCIN
     Indication: Dermatitis acneiform
     Dosage: 1
     Route: 061
     Dates: start: 20230826
  13. CICLOPIROX [Concomitant]
     Active Substance: CICLOPIROX\TOCOPHEROL
     Indication: Nail infection
     Dosage: 1
     Route: 061
     Dates: start: 20231013
  14. CICLOPIROX [Concomitant]
     Active Substance: CICLOPIROX\TOCOPHEROL
     Dosage: 1
     Route: 061
     Dates: start: 20231013
  15. LOPERAMIDE [Concomitant]
     Active Substance: LOPERAMIDE
     Indication: Diarrhoea
     Route: 048
     Dates: start: 20220601
  16. LIDOCAINE [Concomitant]
     Active Substance: LIDOCAINE
     Indication: Musculoskeletal chest pain
  17. CODEINE GUAIFENESIN [Concomitant]
     Active Substance: CODEINE PHOSPHATE\GUAIFENESIN
     Indication: Cough
     Dosage: 10-10-0 MG/5ML
  18. FOLIC ACID [Concomitant]
     Active Substance: FOLIC ACID
     Indication: Prophylactic chemotherapy
     Route: 048
     Dates: start: 20230809
  19. CYANOCOBALAMIN [Concomitant]
     Active Substance: CYANOCOBALAMIN
     Indication: Prophylactic chemotherapy
     Route: 048
     Dates: start: 20230816
  20. ZINC OXIDE [Concomitant]
     Active Substance: ZINC OXIDE
     Dosage: 1 UNIT OF DOSAGE NOT PROVIDED
     Route: 061
     Dates: start: 20231001
  21. GUAIFENESIN [Concomitant]
     Active Substance: GUAIFENESIN
     Indication: Influenza like illness
     Route: 048
     Dates: start: 20231103, end: 20231104
  22. ACETAMINOPHEN AND DEXTROMETHORPHAN HYDROBROMIDE AND GUAIFENESIN AND PS [Concomitant]
     Indication: Influenza like illness
     Dosage: 325/10/5
     Route: 048
     Dates: start: 20231104, end: 20231109
  23. APIXABAN [Concomitant]
     Active Substance: APIXABAN
     Indication: Thrombosis prophylaxis
     Dates: start: 20231107
  24. BENZONATATE [Concomitant]
     Active Substance: BENZONATATE
     Indication: Influenza like illness
     Route: 048
     Dates: start: 20231110

REACTIONS (1)
  - Diarrhoea [Not Recovered/Not Resolved]

NARRATIVE: CASE EVENT DATE: 20231116
